FAERS Safety Report 5102358-7 (Version None)
Quarter: 2006Q3

REPORT INFORMATION
  Report Type: 
  Country: None (occurrence: None)
  Receive Date: 20060912
  Receipt Date: 20060616
  Transmission Date: 20061208
  Serious: No
  Sender: FDA-Public Use
  Company Number: US-GLAXOSMITHKLINE-A0609529A

PATIENT
  Age: 64 Year
  Sex: Male

DRUGS (4)
  1. FLOVENT [Suspect]
     Indication: ASTHMA
     Dosage: 2PUFF TWICE PER DAY
     Route: 055
     Dates: start: 20060501, end: 20060714
  2. SYNTHROID [Concomitant]
  3. ZETIA [Concomitant]
  4. ATENOLOL [Concomitant]

REACTIONS (2)
  - DRY MOUTH [None]
  - DYSPHONIA [None]
